FAERS Safety Report 5124957-9 (Version None)
Quarter: 2006Q4

REPORT INFORMATION
  Report Type: 
  Country: None (occurrence: None)
  Receive Date: 20061011
  Receipt Date: 20061003
  Transmission Date: 20070319
  Serious: Yes (Hospitalization)
  Sender: FDA-Public Use
  Company Number: US-JNJFOC-20061000972

PATIENT
  Sex: Female
  Weight: 68.95 kg

DRUGS (5)
  1. FENTANYL TRANSDERMAL SYSTEM [Suspect]
     Route: 062
  2. FENTANYL TRANSDERMAL SYSTEM [Suspect]
     Route: 062
  3. FENTANYL TRANSDERMAL SYSTEM [Suspect]
     Dosage: 1X50UG/HR + 1X25UG/HR PATCHES
     Route: 062
  4. FENTANYL TRANSDERMAL SYSTEM [Suspect]
     Dosage: 2X 25UG/HR PATCHES
     Route: 062
  5. FENTANYL TRANSDERMAL SYSTEM [Suspect]
     Indication: PAIN
     Route: 062

REACTIONS (4)
  - DRUG INEFFECTIVE [None]
  - FACIAL PALSY [None]
  - HYPERHIDROSIS [None]
  - PAIN [None]
